FAERS Safety Report 9515671 (Version 3)
Quarter: 2013Q4

REPORT INFORMATION
  Report Type: Spontaneous
  Country: JP (occurrence: JP)
  Receive Date: 20130911
  Receipt Date: 20131028
  Transmission Date: 20140711
  Serious: Yes (Life-Threatening)
  Sender: FDA-Public Use
  Company Number: JP-OTSUKA-JP-2013-13568

PATIENT
  Age: 74 Year
  Sex: Male
  Weight: 56 kg

DRUGS (8)
  1. PLETAAL [Suspect]
     Dosage: 100 MG MILLIGRAM(S), DAILY DOSE
     Route: 048
  2. PLETAAL [Suspect]
     Dosage: 200 MG MILLIGRAM(S), DAILY DOSE
     Route: 048
     Dates: start: 201301
  3. ASPIRIN [Concomitant]
     Dosage: 100 MG MILLIGRAM(S), DAILY DOSE
     Route: 048
  4. ROSUVASTATIN CALCIUM [Concomitant]
     Dosage: 5 MG MILLIGRAM(S), DAILY DOSE
     Route: 048
  5. AMLODIPINE [Concomitant]
     Dosage: 5 MG MILLIGRAM(S), QAM
     Route: 048
  6. OLMESARTAN MEDOXOMIL [Concomitant]
     Dosage: 20 MG MILLIGRAM(S), DAILY DOSE
     Route: 048
  7. WARFARIN K [Concomitant]
     Dosage: 2.75 MG MILLIGRAM(S), DAILY DOSE
     Route: 048
  8. LANSOPRAZOLE [Concomitant]
     Dosage: 15 MG MILLIGRAM(S), QPM
     Route: 048

REACTIONS (2)
  - Ventricular fibrillation [Recovering/Resolving]
  - Coronary artery thrombosis [Recovering/Resolving]
